FAERS Safety Report 24543987 (Version 1)
Quarter: 2024Q4

REPORT INFORMATION
  Report Type: Spontaneous
  Country: IT (occurrence: IT)
  Receive Date: 20241024
  Receipt Date: 20241024
  Transmission Date: 20250115
  Serious: Yes (Other)
  Sender: ASTELLAS
  Company Number: IT-ASTELLAS-2024-AER-014093

PATIENT
  Age: 78 Year
  Sex: Male

DRUGS (1)
  1. XOSPATA [Suspect]
     Active Substance: GILTERITINIB
     Indication: Product used for unknown indication
     Route: 065
     Dates: start: 20190915

REACTIONS (1)
  - Acute myeloid leukaemia recurrent [Unknown]

NARRATIVE: CASE EVENT DATE: 20220501
